FAERS Safety Report 24551910 (Version 1)
Quarter: 2024Q4

REPORT INFORMATION
  Report Type: Other
  Country: CN (occurrence: CN)
  Receive Date: 20241026
  Receipt Date: 20241026
  Transmission Date: 20250115
  Serious: Yes (Hospitalization)
  Sender: ANI
  Company Number: CN-ANIPHARMA-012636

PATIENT
  Age: 64 Year
  Sex: Male

DRUGS (1)
  1. TEMOZOLOMIDE [Suspect]
     Active Substance: TEMOZOLOMIDE
     Indication: Adenocarcinoma

REACTIONS (2)
  - Drug intolerance [Unknown]
  - Nausea [Unknown]
